FAERS Safety Report 10038313 (Version 1)
Quarter: 2014Q1

REPORT INFORMATION
  Report Type: Spontaneous
  Country: US (occurrence: None)
  Receive Date: 20140306
  Receipt Date: 20140306
  Transmission Date: 20141002
  Serious: Yes (Hospitalization)
  Sender: FDA-Public Use
  Company Number: 163-21880-13105881

PATIENT
  Age: 72 Year
  Sex: Female
  Weight: 66.54 kg

DRUGS (4)
  1. REVLIMID [Suspect]
     Indication: PLASMA CELL MYELOMA
     Dosage: 10 MG , 1 IN 1 D, PO 06/15/2012 - UNKNOWN THERAPY DATES
     Route: 048
     Dates: start: 200906, end: 20120605
  2. ZOMETA (ZOLEDRONIC ACID) [Concomitant]
  3. MIRTAZAPINE [Concomitant]
  4. ZOLOFT (SERTRALINE HYDROCHLORIDE) [Concomitant]

REACTIONS (6)
  - Cholecystitis acute [None]
  - Dehydration [None]
  - Drug ineffective [None]
  - Neutrophil count decreased [None]
  - Neuropathy peripheral [None]
  - Eye infection [None]
